FAERS Safety Report 4395844-9 (Version None)
Quarter: 2004Q3

REPORT INFORMATION
  Report Type: 
  Country: None (occurrence: None)
  Receive Date: 20040707
  Receipt Date: 20040624
  Transmission Date: 20050211
  Serious: Yes (Other)
  Sender: FDA-Public Use
  Company Number: JP-JNJFOC-20040402355

PATIENT
  Age: 51 Year
  Sex: Male

DRUGS (2)
  1. LEUSTATIN [Suspect]
     Indication: NON-HODGKIN'S LYMPHOMA
     Dosage: 6M, 1 IN 1 DAY, INTRAVENOUS DRIP
     Route: 041
     Dates: start: 20040329, end: 20040404
  2. LEUSTATIN [Suspect]
     Indication: NON-HODGKIN'S LYMPHOMA
     Dosage: 6M, 1 IN 1 DAY, INTRAVENOUS DRIP
     Route: 041
     Dates: start: 20040501

REACTIONS (6)
  - BONE MARROW DEPRESSION [None]
  - ERYTHEMA [None]
  - HAEMOLYTIC ANAEMIA [None]
  - RASH PAPULAR [None]
  - SEPSIS [None]
  - WHITE BLOOD CELL COUNT DECREASED [None]
